FAERS Safety Report 4731768-2 (Version None)
Quarter: 2005Q3

REPORT INFORMATION
  Report Type: 
  Country: None (occurrence: None)
  Receive Date: 20050725
  Receipt Date: 20040609
  Transmission Date: 20060218
  Serious: Yes (Disabling)
  Sender: FDA-Public Use
  Company Number: WAES 0405USA01052

PATIENT
  Age: 60 Year
  Sex: Male
  Weight: 104.3273 kg

DRUGS (4)
  1. VIOXX [Suspect]
     Indication: ARTHROPATHY
     Dosage: 50 MG/DAILY/PO
     Route: 048
     Dates: start: 20040329, end: 20040331
  2. CRESTOR [Concomitant]
  3. FOLGARD [Concomitant]
  4. TOPROL-XL [Concomitant]

REACTIONS (1)
  - BLOOD PRESSURE INCREASED [None]
